FAERS Safety Report 20006229 (Version 4)
Quarter: 2022Q2

REPORT INFORMATION
  Report Type: Spontaneous
  Country: DE (occurrence: DE)
  Receive Date: 20211028
  Receipt Date: 20220520
  Transmission Date: 20220720
  Serious: Yes (Other)
  Sender: FDA-Public Use
  Company Number: DE-SANOFI-00820629

PATIENT
  Age: 43 Year
  Sex: Male

DRUGS (6)
  1. LANTUS [Suspect]
     Active Substance: INSULIN GLARGINE
     Indication: Diabetes mellitus
     Dosage: 6 IU
     Route: 065
  2. LANTUS [Suspect]
     Active Substance: INSULIN GLARGINE
     Dosage: 16 IU
     Route: 065
  3. INSULIN GLARGINE [Suspect]
     Active Substance: INSULIN GLARGINE
     Dosage: UNK
  4. LEVEMIR [Suspect]
     Active Substance: INSULIN DETEMIR
     Dosage: UNK
     Route: 065
  5. HUMALOG [Concomitant]
     Active Substance: INSULIN LISPRO
     Dosage: UNK
     Route: 065
  6. APIDRA [Concomitant]
     Active Substance: INSULIN GLULISINE
     Dosage: UNK

REACTIONS (25)
  - Appendicitis [Unknown]
  - Hypertension [Recovered/Resolved]
  - Faeces discoloured [Unknown]
  - Tongue coated [Unknown]
  - Mental disorder [Unknown]
  - Pain [Unknown]
  - Acne [Unknown]
  - Diarrhoea [Unknown]
  - Abdominal pain [Unknown]
  - Malaise [Unknown]
  - Alopecia [Unknown]
  - Contusion [Unknown]
  - Erythema [Unknown]
  - Dizziness [Unknown]
  - Hypertension [Unknown]
  - Inflammation [Unknown]
  - Nasal mucosal disorder [Unknown]
  - Dyspnoea [Unknown]
  - Nasal dryness [Unknown]
  - Blood glucose fluctuation [Unknown]
  - Visual impairment [Unknown]
  - Pruritus [Unknown]
  - Rash [Unknown]
  - Hypoglycaemia [Unknown]
  - Intentional dose omission [Unknown]
